FAERS Safety Report 16777290 (Version 1)
Quarter: 2020Q3

REPORT INFORMATION
  Report Type: Spontaneous
  Country: US (occurrence: US)
  Receive Date: 20190905
  Receipt Date: 20190905
  Transmission Date: 20201104
  Serious: Yes (Hospitalization)
  Sender: FDA-Public Use
  Company Number: US-CELGENEUS-USA-20190900144

PATIENT
  Age: 66 Year
  Sex: Male
  Weight: 71.8 kg

DRUGS (3)
  1. MEDI4736 (DURVALUMAB) [Suspect]
     Active Substance: DURVALUMAB
     Indication: METASTATIC SQUAMOUS CELL CARCINOMA
     Route: 042
  2. AZACITIDINE. [Suspect]
     Active Substance: AZACITIDINE
     Indication: METASTATIC SQUAMOUS CELL CARCINOMA
     Dosage: 40 MILLIGRAM/SQ. METER
     Route: 058
     Dates: start: 20190805, end: 20190816
  3. TREMELIMUMAB. [Suspect]
     Active Substance: TREMELIMUMAB
     Indication: METASTATIC SQUAMOUS CELL CARCINOMA
     Route: 042

REACTIONS (1)
  - Fall [Unknown]

NARRATIVE: CASE EVENT DATE: 20190818
